FAERS Safety Report 23718560 (Version 1)
Quarter: 2024Q2

REPORT INFORMATION
  Report Type: Spontaneous
  Country: CA (occurrence: CA)
  Receive Date: 20240408
  Receipt Date: 20240408
  Transmission Date: 20240716
  Serious: Yes (Other)
  Sender: FDA-Public Use
  Company Number: CA-AMGEN-CANSP2024066564

PATIENT
  Age: 90 Year
  Sex: Female

DRUGS (7)
  1. PROLIA [Suspect]
     Active Substance: DENOSUMAB
     Indication: Osteoporosis
     Dosage: UNK
     Route: 065
     Dates: start: 2013, end: 2022
  2. VITAMIN D NOS [Concomitant]
     Active Substance: VITAMIN D NOS
     Dosage: 2000 INTERNATIONAL UNIT, QD
  3. METOPROLOL [Concomitant]
     Active Substance: METOPROLOL
     Route: 065
  4. MICARDIS [Concomitant]
     Active Substance: TELMISARTAN
     Route: 065
  5. MYRBETRIQ [Concomitant]
     Active Substance: MIRABEGRON
     Route: 065
  6. NORVASC [Concomitant]
     Active Substance: AMLODIPINE BESYLATE
     Route: 065
  7. VITAMIN C [Concomitant]
     Active Substance: ASCORBIC ACID

REACTIONS (12)
  - Atypical femur fracture [Unknown]
  - Cataract [Unknown]
  - Cervical spinal stenosis [Unknown]
  - Basal cell carcinoma [Unknown]
  - Spinal laminectomy [Unknown]
  - Intervertebral disc operation [Unknown]
  - Bladder repair [Unknown]
  - Hyperparathyroidism primary [Unknown]
  - Thyroid mass [Unknown]
  - Hypergammaglobulinaemia benign monoclonal [Unknown]
  - Hypertension [Unknown]
  - Urinary incontinence [Unknown]

NARRATIVE: CASE EVENT DATE: 20190101
